FAERS Safety Report 9130847 (Version 2)
Quarter: 2013Q1

REPORT INFORMATION
  Report Type: Spontaneous
  Country: US (occurrence: US)
  Receive Date: 20130301
  Receipt Date: 20130327
  Transmission Date: 20140127
  Serious: Yes (Hospitalization, Other)
  Sender: FDA-Public Use
  Company Number: US-PFIZER INC-2013070919

PATIENT
  Age: 39 Year
  Sex: Female
  Weight: 98 kg

DRUGS (5)
  1. CELEBREX [Suspect]
     Indication: ARTHRITIS
     Dosage: 200 MG, DAILY
     Route: 048
  2. CELEBREX [Suspect]
     Indication: OSTEOPOROSIS
     Dosage: 200 MG, 1X/DAY
     Route: 048
     Dates: start: 20120207
  3. CELEBREX [Suspect]
     Indication: OSTEOARTHRITIS
  4. FENOFIBRATE [Concomitant]
     Dosage: UNK
  5. FERROUS SULPHATE [Concomitant]
     Indication: ANAEMIA
     Dosage: UNK

REACTIONS (6)
  - Gangrene [Unknown]
  - Diabetes mellitus [Unknown]
  - Liver disorder [Unknown]
  - Lung disorder [Unknown]
  - Arthropathy [Unknown]
  - Viral infection [Unknown]
